FAERS Safety Report 10256504 (Version 1)
Quarter: 2014Q2

REPORT INFORMATION
  Report Type: Spontaneous
  Country: US (occurrence: US)
  Receive Date: 20140624
  Receipt Date: 20140624
  Transmission Date: 20141212
  Serious: No
  Sender: FDA-Public Use
  Company Number: US-ZOGENIX, INC.-2012ZX000217

PATIENT
  Age: 29 Year
  Sex: Female
  Weight: 59.02 kg

DRUGS (6)
  1. SUMAVEL DOSEPRO [Suspect]
     Indication: MIGRAINE
     Dates: start: 20120608, end: 20120608
  2. PERCOCET [Concomitant]
     Indication: PAIN
     Route: 048
  3. TOPAMAX [Concomitant]
     Indication: MIGRAINE
     Route: 048
  4. VERAPAMIL [Concomitant]
     Indication: PRODUCT USED FOR UNKNOWN INDICATION
     Route: 048
  5. TOPROL [Concomitant]
     Indication: PRODUCT USED FOR UNKNOWN INDICATION
     Route: 048
  6. PAXIL [Concomitant]
     Indication: PRODUCT USED FOR UNKNOWN INDICATION
     Route: 048

REACTIONS (2)
  - Injection site discomfort [Recovered/Resolved]
  - Device malfunction [Recovered/Resolved]
